FAERS Safety Report 8493039-0 (Version None)
Quarter: 2012Q2

REPORT INFORMATION
  Report Type: 
  Country: None (occurrence: None)
  Receive Date: 20120629
  Receipt Date: 20120629
  Transmission Date: 20120825
  Serious: Yes (Hospitalization)
  Sender: FDA-Public Use
  Company Number: None

PATIENT
  Sex: Female
  Weight: 54 kg

DRUGS (3)
  1. CYCLOPHOSPHAMIDE [Suspect]
  2. FLUDARABINE PHOSPHATE 126 MG [Suspect]
  3. RITUXIMAB (MAAB C2B8 ANTI CD20, CHIMERIC) 850 MG [Suspect]

REACTIONS (12)
  - ASPARTATE AMINOTRANSFERASE INCREASED [None]
  - CHILLS [None]
  - APPETITE DISORDER [None]
  - HYPOPHAGIA [None]
  - BODY TEMPERATURE INCREASED [None]
  - FEELING OF BODY TEMPERATURE CHANGE [None]
  - BLOOD ALKALINE PHOSPHATASE INCREASED [None]
  - DYSPNOEA EXERTIONAL [None]
  - COUGH [None]
  - ALANINE AMINOTRANSFERASE INCREASED [None]
  - VOMITING [None]
  - ABDOMINAL PAIN LOWER [None]
